FAERS Safety Report 7935197 (Version 3)
Quarter: 2012Q4

REPORT INFORMATION
  Report Type: Spontaneous
  Country: US (occurrence: None)
  Receive Date: 20110419
  Receipt Date: 20121022
  Transmission Date: 20130627
  Serious: Yes (Hospitalization, Other)
  Sender: FDA-Public Use
  Company Number: 2011MA003505

PATIENT
  Sex: Female
  Weight: 70.31 kg

DRUGS (33)
  1. METOCLOPRAMIDE [Suspect]
     Indication: GERD
     Dosage: 10 MG
     Dates: start: 20081104, end: 20091104
  2. GLIPIZIDE [Concomitant]
  3. CLONIDINE [Concomitant]
  4. SULAR [Concomitant]
  5. IRON [Concomitant]
  6. ZOFRAN [Concomitant]
  7. INSULIN NOS [Concomitant]
  8. NORVASC [Concomitant]
  9. COREG [Concomitant]
  10. HYDRALAZINE HYDROCHLORIDE [Concomitant]
  11. PRILOSEC [Concomitant]
  12. FOLIC ACID [Concomitant]
  13. PERCOCET [Concomitant]
  14. FLEXERIL [Concomitant]
  15. ZOLOFT [Concomitant]
  16. VITAMIN E [Concomitant]
  17. ALBUTEROL [Concomitant]
  18. CIPRO [Concomitant]
  19. CLORAZEPATE [Concomitant]
  20. HYDROCODONE [Concomitant]
  21. IBUPROFEN [Concomitant]
  22. MEPERIDINE [Concomitant]
  23. METOPROLOL [Concomitant]
  24. METRONIDAZOLE [Concomitant]
  25. PANTOPRAZOLE [Concomitant]
  26. POTASSIUM [Concomitant]
  27. PROMETHAZINE [Concomitant]
  28. RANITIDINE [Concomitant]
  29. ROCEPHIN [Concomitant]
  30. SINGULAIR [Concomitant]
  31. SULFAMETHOZAZOLE/ TMP [Concomitant]
  32. TRIAMTERENE/ HCTZ [Concomitant]
  33. ZEGERID [Concomitant]

REACTIONS (18)
  - Emotional disorder [None]
  - Dystonia [None]
  - Malaise [None]
  - Asthenia [None]
  - Nausea [None]
  - Pulmonary oedema [None]
  - Pneumonia [None]
  - Tardive dyskinesia [None]
  - Extrapyramidal disorder [None]
  - Economic problem [None]
  - Anaemia [None]
  - Cardiac failure congestive [None]
  - Sinusitis [None]
  - Pyelonephritis [None]
  - Urinary tract infection [None]
  - Anxiety [None]
  - Nervousness [None]
  - Rhinitis allergic [None]
